FAERS Safety Report 6636383-1 (Version None)
Quarter: 2010Q1

REPORT INFORMATION
  Report Type: 
  Country: None (occurrence: None)
  Receive Date: 20100316
  Receipt Date: 20100223
  Transmission Date: 20100710
  Serious: No
  Sender: FDA-Public Use
  Company Number: JP-ROCHE-690831

PATIENT
  Age: 34 Year
  Sex: Female

DRUGS (1)
  1. TAMIFLU [Suspect]
     Indication: INFLUENZA
     Dosage: THERAPY: FOR 5DAYS, DOSE FORM:ORAL FORMATION(NOT OTHERWISE SPECIFIED)
     Route: 048
     Dates: start: 20091126, end: 20091130

REACTIONS (1)
  - DRUG EXPOSURE DURING PREGNANCY [None]
